FAERS Safety Report 9109056 (Version 3)
Quarter: 2013Q2

REPORT INFORMATION
  Report Type: Report from Study
  Country: US (occurrence: US)
  Receive Date: 20130222
  Receipt Date: 20130503
  Transmission Date: 20140414
  Serious: Yes (Other)
  Sender: FDA-Public Use
  Company Number: US-US-EMD SERONO, INC.-7194326

PATIENT
  Age: 61 Year
  Sex: Female

DRUGS (1)
  1. REBIF [Suspect]
     Indication: MULTIPLE SCLEROSIS
     Route: 058
     Dates: start: 20111018

REACTIONS (13)
  - Optic neuritis [Not Recovered/Not Resolved]
  - Petechiae [Not Recovered/Not Resolved]
  - Vitamin B12 abnormal [Unknown]
  - Red cell distribution width abnormal [Unknown]
  - Vertigo [Not Recovered/Not Resolved]
  - Dyspnoea [Unknown]
  - Chest discomfort [Unknown]
  - Tremor [Unknown]
  - Fluid retention [Unknown]
  - Gastrooesophageal reflux disease [Unknown]
  - Multiple sclerosis [Not Recovered/Not Resolved]
  - Liver function test abnormal [Unknown]
  - Pruritus generalised [Unknown]
